FAERS Safety Report 6683069-3 (Version None)
Quarter: 2010Q2

REPORT INFORMATION
  Report Type: 
  Country: None (occurrence: None)
  Receive Date: 20100415
  Receipt Date: 20100408
  Transmission Date: 20101027
  Serious: Yes (Hospitalization, Disabling, Other)
  Sender: FDA-Public Use
  Company Number: PHHY2009CA49355

PATIENT
  Sex: Female

DRUGS (13)
  1. CLOZARIL [Suspect]
     Indication: SCHIZOPHRENIA
     Dosage: UNK
     Dates: start: 20091022
  2. CLOZARIL [Suspect]
     Indication: BIPOLAR I DISORDER
     Dosage: 75 MG, BID
     Dates: start: 20091105
  3. CLOZARIL [Suspect]
     Dosage: 50 MG IN THE A.M. AND INCREASED TO 75 MG IN THE P.M
     Dates: start: 20091106
  4. CLOZARIL [Suspect]
     Dosage: 25 MG, UNK
     Route: 048
  5. MONOCOR [Concomitant]
  6. EPIVAL [Concomitant]
     Dosage: 1500 MG DAILY
  7. SYNTHROID [Concomitant]
     Dosage: 0.1 ML DAILY
  8. PREMARIL [Concomitant]
  9. PANTALOL [Concomitant]
  10. D-TABS [Concomitant]
  11. ALLOPURINOL [Concomitant]
  12. ASAPHEN [Concomitant]
  13. BISOPROLOL [Concomitant]

REACTIONS (7)
  - ATRIAL FIBRILLATION [None]
  - ATRIAL FLUTTER [None]
  - COGNITIVE DISORDER [None]
  - EMBOLIC STROKE [None]
  - HEMIPLEGIA [None]
  - SOMNOLENCE [None]
  - TACHYCARDIA [None]
